FAERS Safety Report 16333860 (Version 1)
Quarter: 2019Q2

REPORT INFORMATION
  Report Type: Report from Study
  Country: DE (occurrence: DE)
  Receive Date: 20190520
  Receipt Date: 20190520
  Transmission Date: 20190711
  Serious: Yes (Hospitalization)
  Sender: FDA-Public Use
  Company Number: DE-GILEAD-2019-0406914

PATIENT
  Age: 52 Year
  Sex: Male
  Weight: 86.3 kg

DRUGS (4)
  1. ALLOPURINOL. [Concomitant]
     Active Substance: ALLOPURINOL
  2. COTRIMOXAZOL [Concomitant]
     Active Substance: SULFAMETHOXAZOLE\TRIMETHOPRIM
  3. OBINUTUZUMAB. [Suspect]
     Active Substance: OBINUTUZUMAB
     Indication: CHRONIC LYMPHOCYTIC LEUKAEMIA
     Dosage: 1000 MG TOTAL DAILY DOSE
     Route: 042
     Dates: start: 20190111, end: 20190409
  4. IDELALISIB [Suspect]
     Active Substance: IDELALISIB
     Indication: CHRONIC LYMPHOCYTIC LEUKAEMIA
     Dosage: 300 MG TOTAL DAILY DOSE
     Route: 048
     Dates: start: 20190312, end: 20190507

REACTIONS (1)
  - Guttate psoriasis [Recovering/Resolving]

NARRATIVE: CASE EVENT DATE: 20190506
